FAERS Safety Report 24256082 (Version 2)
Quarter: 2024Q3

REPORT INFORMATION
  Report Type: Report from Study
  Country: CA (occurrence: CA)
  Receive Date: 20240827
  Receipt Date: 20240925
  Transmission Date: 20241017
  Serious: Yes (Other)
  Sender: JOHNSON AND JOHNSON
  Company Number: CA-JNJFOC-20240680251

PATIENT
  Age: 26 Year
  Sex: Female

DRUGS (3)
  1. REMICADE [Suspect]
     Active Substance: INFLIXIMAB
     Indication: Juvenile idiopathic arthritis
     Dosage: 5 (MG/KG MILLIGRAM(S)/KILOGRAM )
     Route: 041
     Dates: start: 20221206
  2. REMICADE [Suspect]
     Active Substance: INFLIXIMAB
     Route: 041
     Dates: start: 20221212
  3. REMICADE [Suspect]
     Active Substance: INFLIXIMAB
     Route: 041
     Dates: start: 20221206

REACTIONS (10)
  - Craniocerebral injury [Recovering/Resolving]
  - Road traffic accident [Unknown]
  - Ligament sprain [Recovering/Resolving]
  - Ligament sprain [Recovering/Resolving]
  - Rheumatoid arthritis [Not Recovered/Not Resolved]
  - Fatigue [Unknown]
  - Herpes zoster [Recovering/Resolving]
  - Pain [Not Recovered/Not Resolved]
  - Acarodermatitis [Recovering/Resolving]
  - Lymphadenitis [Recovered/Resolved]

NARRATIVE: CASE EVENT DATE: 20240610
